FAERS Safety Report 21813092 (Version 5)
Quarter: 2024Q1

REPORT INFORMATION
  Report Type: Report from Study
  Country: US (occurrence: US)
  Receive Date: 20230103
  Receipt Date: 20240314
  Transmission Date: 20240409
  Serious: Yes (Hospitalization, Other)
  Sender: FDA-Public Use
  Company Number: US-GW PHARMA-2022-US-038765

PATIENT
  Age: 3 Year
  Sex: Male

DRUGS (4)
  1. EPIDIOLEX [Suspect]
     Active Substance: CANNABIDIOL
     Indication: Partial seizures
     Dosage: 2 MILLILITER
     Route: 048
     Dates: start: 20220120, end: 20221118
  2. EPIDIOLEX [Suspect]
     Active Substance: CANNABIDIOL
     Indication: Epilepsy
     Dosage: 2 MILLILITER, BID
     Route: 048
     Dates: start: 202212
  3. EPIDIOLEX [Suspect]
     Active Substance: CANNABIDIOL
     Indication: Status epilepticus
     Dosage: 3 MILLILITER, BID
     Route: 048
     Dates: start: 202201
  4. EPIDIOLEX [Suspect]
     Active Substance: CANNABIDIOL
     Dosage: 3 MILLILITER, BID
     Route: 048
     Dates: start: 202201

REACTIONS (6)
  - Brain neoplasm [Unknown]
  - Hospitalisation [Unknown]
  - Hospitalisation [Unknown]
  - Seizure [Recovered/Resolved]
  - Seizure [Recovered/Resolved]
  - Emergency care [Unknown]

NARRATIVE: CASE EVENT DATE: 20221113
